FAERS Safety Report 18226358 (Version 1)
Quarter: 2020Q3

REPORT INFORMATION
  Report Type: Spontaneous
  Country: FR (occurrence: FR)
  Receive Date: 20200903
  Receipt Date: 20200903
  Transmission Date: 20201103
  Serious: Yes (Other)
  Sender: FDA-Public Use
  Company Number: FR-TEVA-2020-FR-1821759

PATIENT
  Age: 59 Year
  Sex: Male
  Weight: 81.9 kg

DRUGS (12)
  1. PANTOPRAZOLE [Concomitant]
     Active Substance: PANTOPRAZOLE
  2. KAYEXALATE [Concomitant]
     Active Substance: SODIUM POLYSTYRENE SULFONATE
  3. CORTANCYL [Concomitant]
     Active Substance: PREDNISONE
  4. BISOPROLOL (HEMIFUMARATE DE) [Concomitant]
     Active Substance: BISOPROLOL FUMARATE
  5. FUROSEMIDE. [Concomitant]
     Active Substance: FUROSEMIDE
  6. AMLODIPINE [Concomitant]
     Active Substance: AMLODIPINE BESYLATE
  7. VORICONAZOLE. [Suspect]
     Active Substance: VORICONAZOLE
     Indication: ASPERGILLUS INFECTION
     Dosage: 1000 MG
     Route: 048
     Dates: start: 20200427, end: 20200710
  8. MIMPARA [Concomitant]
     Active Substance: CINACALCET HYDROCHLORIDE
  9. BICARBONATE DE SODIUM [Concomitant]
     Active Substance: SODIUM BICARBONATE
  10. ZYMAD [Concomitant]
     Active Substance: CHOLECALCIFEROL
  11. ENVARSUS XR [Concomitant]
     Active Substance: TACROLIMUS
  12. COUMADINE [Interacting]
     Active Substance: WARFARIN SODIUM
     Indication: ANTIPHOSPHOLIPID SYNDROME
     Dosage: 1 MG
     Route: 048
     Dates: end: 20200526

REACTIONS (2)
  - Drug interaction [Unknown]
  - Hypoprothrombinaemia [Recovered/Resolved]

NARRATIVE: CASE EVENT DATE: 202005
